FAERS Safety Report 15311933 (Version 1)
Quarter: 2018Q3

REPORT INFORMATION
  Report Type: Spontaneous
  Country: US (occurrence: US)
  Receive Date: 20180814
  Receipt Date: 20180814
  Transmission Date: 20181010
  Serious: Yes (Hospitalization)
  Sender: FDA-Public Use
  Company Number: None

PATIENT
  Age: 59 Year
  Sex: Female
  Weight: 104.4 kg

DRUGS (2)
  1. VANCOMYCIN [Suspect]
     Active Substance: VANCOMYCIN
     Indication: STAPHYLOCOCCAL INFECTION
     Route: 041
     Dates: start: 20180520, end: 20180529
  2. VANCOMYCIN [Suspect]
     Active Substance: VANCOMYCIN
     Indication: ENTEROCOCCAL INFECTION
     Route: 041
     Dates: start: 20180520, end: 20180529

REACTIONS (6)
  - Staphylococcal infection [None]
  - Wound dehiscence [None]
  - Enterococcal infection [None]
  - Rash [None]
  - Drug reaction with eosinophilia and systemic symptoms [None]
  - Pyrexia [None]

NARRATIVE: CASE EVENT DATE: 20180529
